FAERS Safety Report 9999075 (Version 1)
Quarter: 2014Q1

REPORT INFORMATION
  Report Type: Spontaneous
  Country: US (occurrence: None)
  Receive Date: 20140311
  Receipt Date: 20140311
  Transmission Date: 20141002
  Serious: Yes (Other)
  Sender: FDA-Public Use
  Company Number: None

PATIENT
  Age: 58 Year
  Sex: Male

DRUGS (1)
  1. IC VALSARTAN-HCTZ, 320-12.5 MG TAB, M V24 [Suspect]
     Indication: HYPERTENSION

REACTIONS (3)
  - Fatigue [None]
  - Blood pressure increased [None]
  - Product substitution issue [None]
